FAERS Safety Report 21023318 (Version 4)
Quarter: 2022Q3

REPORT INFORMATION
  Report Type: Spontaneous
  Country: JP (occurrence: JP)
  Receive Date: 20220629
  Receipt Date: 20220831
  Transmission Date: 20221027
  Serious: Yes (Hospitalization)
  Sender: FDA-Public Use
  Company Number: JP-CHUGAI-2022024296

PATIENT
  Age: 13 Year
  Sex: Female
  Weight: 35.9 kg

DRUGS (6)
  1. ENSPRYNG [Suspect]
     Active Substance: SATRALIZUMAB-MWGE
     Indication: Neuromyelitis optica spectrum disorder
     Route: 058
     Dates: start: 20220328, end: 2022
  2. ENSPRYNG [Suspect]
     Active Substance: SATRALIZUMAB-MWGE
     Route: 058
     Dates: start: 2022
  3. ALFAROL [Concomitant]
     Active Substance: ALFACALCIDOL
     Dates: start: 2017
  4. PREDNISOLONE [Concomitant]
     Active Substance: PREDNISOLONE
     Dates: start: 2017
  5. FAMOTIDINE [Concomitant]
     Active Substance: FAMOTIDINE
     Dates: start: 2017
  6. TACROLIMUS [Concomitant]
     Active Substance: TACROLIMUS
     Dates: start: 201906

REACTIONS (1)
  - Optic neuritis [Recovering/Resolving]

NARRATIVE: CASE EVENT DATE: 20220620
